FAERS Safety Report 5478763-6 (Version None)
Quarter: 2007Q4

REPORT INFORMATION
  Report Type: 
  Country: None (occurrence: None)
  Receive Date: 20071005
  Receipt Date: 20070926
  Transmission Date: 20080405
  Serious: Yes (Life-Threatening)
  Sender: FDA-Public Use
  Company Number: JP-MERCK-0710USA00252

PATIENT
  Age: 65 Year
  Sex: Male

DRUGS (1)
  1. ZETIA [Suspect]
     Indication: TYPE IIA HYPERLIPIDAEMIA
     Route: 048
     Dates: start: 20070615

REACTIONS (5)
  - ANOREXIA [None]
  - DIARRHOEA [None]
  - EYE OPERATION [None]
  - GASTROINTESTINAL DISORDER [None]
  - MECHANICAL ILEUS [None]
